FAERS Safety Report 7516998-9 (Version None)
Quarter: 2011Q2

REPORT INFORMATION
  Report Type: 
  Country: None (occurrence: None)
  Receive Date: 20110601
  Receipt Date: 20110516
  Transmission Date: 20111010
  Serious: No
  Sender: FDA-Public Use
  Company Number: US-JNJFOC-20101200383

PATIENT
  Sex: Male

DRUGS (14)
  1. GOLIMUMAB [Suspect]
     Indication: ANKYLOSING SPONDYLITIS
     Route: 058
     Dates: start: 20101103
  2. GOLIMUMAB [Suspect]
     Route: 058
     Dates: start: 20060815
  3. ENTOCORT EC [Concomitant]
     Route: 048
     Dates: start: 20060804
  4. NEXIUM [Concomitant]
     Route: 058
     Dates: start: 20080922
  5. DARVOCET [Concomitant]
     Route: 048
     Dates: start: 20100202
  6. CARDIZEM [Concomitant]
     Route: 048
     Dates: start: 19970601
  7. HYDROCHLOROTHIAZIDE [Concomitant]
     Route: 048
     Dates: start: 20070206
  8. COUMADIN [Concomitant]
     Route: 048
     Dates: start: 20091112
  9. METHADONE HCL [Concomitant]
     Route: 048
     Dates: start: 20100812
  10. FOLIC ACID [Concomitant]
     Route: 048
     Dates: start: 20100826
  11. POTASSIUM CHLORIDE [Concomitant]
     Indication: VITAMIN SUPPLEMENTATION
     Route: 048
     Dates: start: 20070305
  12. NASACORT [Concomitant]
     Route: 045
     Dates: start: 20080716
  13. LISINOPRIL [Concomitant]
     Route: 048
     Dates: start: 20100106
  14. TRAMADOL HCL [Concomitant]
     Route: 048
     Dates: start: 20101124

REACTIONS (1)
  - BASAL CELL CARCINOMA [None]
